FAERS Safety Report 12593537 (Version 1)
Quarter: 2016Q3

REPORT INFORMATION
  Report Type: Spontaneous
  Country: US (occurrence: US)
  Receive Date: 20160726
  Receipt Date: 20160726
  Transmission Date: 20161109
  Serious: No
  Sender: FDA-Public Use
  Company Number: US-ABBVIE-15P-163-1465763-00

PATIENT
  Age: 65 Year
  Sex: Female
  Weight: 56.3 kg

DRUGS (2)
  1. SYNTHROID [Suspect]
     Active Substance: LEVOTHYROXINE SODIUM
     Indication: HYPOTHYROIDISM
     Route: 048
  2. TIROSINT [Suspect]
     Active Substance: LEVOTHYROXINE SODIUM
     Indication: HYPOTHYROIDISM
     Route: 065
     Dates: start: 201506

REACTIONS (6)
  - Arthralgia [Unknown]
  - Drug hypersensitivity [Unknown]
  - Tremor [Unknown]
  - Flank pain [Unknown]
  - Confusional state [Unknown]
  - Back pain [Unknown]

NARRATIVE: CASE EVENT DATE: 201506
